FAERS Safety Report 5974326-4 (Version None)
Quarter: 2008Q4

REPORT INFORMATION
  Report Type: 
  Country: None (occurrence: None)
  Receive Date: 20081128
  Receipt Date: 20081120
  Transmission Date: 20090506
  Serious: Yes (Other)
  Sender: FDA-Public Use
  Company Number: 2008SP024020

PATIENT

DRUGS (1)
  1. MIRALAX [Suspect]
     Indication: OFF LABEL USE
     Dosage: QD; PO
     Route: 048

REACTIONS (1)
  - DRUG DEPENDENCE [None]
